FAERS Safety Report 10342570 (Version 4)
Quarter: 2014Q4

REPORT INFORMATION
  Report Type: Spontaneous
  Country: US (occurrence: US)
  Receive Date: 20140725
  Receipt Date: 20141106
  Transmission Date: 20150528
  Serious: No
  Sender: FDA-Public Use
  Company Number: US-ROXANE LABORATORIES, INC.-2014-RO-01120RO

PATIENT
  Sex: Male

DRUGS (2)
  1. CODEINE SULFATE. [Suspect]
     Active Substance: CODEINE SULFATE
     Dosage: 240 MG
     Route: 048
  2. CODEINE SULFATE. [Suspect]
     Active Substance: CODEINE SULFATE
     Indication: HEADACHE
     Dosage: 180 MG
     Route: 048

REACTIONS (2)
  - Drug ineffective [Not Recovered/Not Resolved]
  - Product quality issue [Not Recovered/Not Resolved]
